FAERS Safety Report 24263458 (Version 1)
Quarter: 2024Q3

REPORT INFORMATION
  Report Type: Spontaneous
  Country: US (occurrence: None)
  Receive Date: 20240828
  Receipt Date: 20240828
  Transmission Date: 20241016
  Serious: No
  Sender: Public
  Company Number: None

PATIENT

DRUGS (2)
  1. ENOXAPARIN [Suspect]
     Active Substance: ENOXAPARIN
     Dosage: OTHER ROUTE : INJECTION ;?
     Route: 050
  2. ENOXAPARIN SODIUM [Suspect]
     Active Substance: ENOXAPARIN SODIUM
     Dosage: OTHER ROUTE : INJECTION;?
     Route: 050

REACTIONS (4)
  - Product storage error [None]
  - Product appearance confusion [None]
  - Product colour issue [None]
  - Intercepted product dispensing error [None]
